FAERS Safety Report 6241464-0 (Version None)
Quarter: 2009Q2

REPORT INFORMATION
  Report Type: 
  Country: None (occurrence: None)
  Receive Date: 20090623
  Receipt Date: 20080505
  Transmission Date: 20091009
  Serious: Yes (Hospitalization)
  Sender: FDA-Public Use
  Company Number: ES-ROCHE-345184

PATIENT
  Sex: Male
  Weight: 65 kg

DRUGS (18)
  1. DACLIZUMAB [Suspect]
     Route: 042
     Dates: start: 20030708, end: 20030708
  2. DACLIZUMAB [Suspect]
     Dosage: START DATE REPORTED AS 21 JULY 2004, WHICH SEEMS TO BE TYPO AS BASELINE VISIT IS ON 8 JULY 2003.
     Route: 042
     Dates: start: 20030721
  3. MYCOPHENOLATE MOFETIL [Suspect]
     Route: 048
     Dates: start: 20030708
  4. MYCOPHENOLATE MOFETIL [Suspect]
     Route: 048
     Dates: start: 20030709
  5. MYCOPHENOLATE MOFETIL [Suspect]
     Route: 048
     Dates: start: 20030710
  6. CYCLOSPORINE [Suspect]
     Dosage: DRUG REPORTED: CYCLOSPORINE
     Route: 048
     Dates: start: 20030708
  7. CYCLOSPORINE [Suspect]
     Dosage: ROUTE: IV
     Route: 048
     Dates: start: 20030910
  8. CYCLOSPORINE [Suspect]
     Route: 048
     Dates: start: 20030911
  9. CYCLOSPORINE [Suspect]
     Route: 048
     Dates: start: 20031204
  10. CYCLOSPORINE [Suspect]
     Route: 048
     Dates: start: 20041022
  11. PREDNISONE [Suspect]
     Route: 048
     Dates: start: 20030712
  12. RANITIDINE [Concomitant]
     Dosage: FORM: VIAL
     Route: 042
     Dates: start: 20030709
  13. ZOCOR [Concomitant]
     Route: 048
     Dates: start: 20030904
  14. OMEPRAZOLE [Concomitant]
     Dates: start: 20031003
  15. AUGMENTIN [Concomitant]
     Dosage: DRUG REPORTED: AUGMENTINE, FORM: VIAL
     Route: 042
     Dates: start: 20030708, end: 20030710
  16. GANCICLOVIR [Concomitant]
     Dosage: DRUG REPORTED: GANCYCLOVIR
     Route: 048
     Dates: start: 20040115
  17. ZINNAT [Concomitant]
     Route: 048
     Dates: start: 20031028, end: 20031104
  18. PREDNISONE [Suspect]
     Dosage: FORM: VIAL
     Route: 042
     Dates: start: 20030708

REACTIONS (3)
  - CYTOMEGALOVIRUS INFECTION [None]
  - OPPORTUNISTIC INFECTION [None]
  - RENAL CYST INFECTION [None]
